FAERS Safety Report 13156107 (Version 1)
Quarter: 2017Q1

REPORT INFORMATION
  Report Type: Spontaneous
  Country: BR (occurrence: BR)
  Receive Date: 20170126
  Receipt Date: 20170126
  Transmission Date: 20170428
  Serious: Yes (Other)
  Sender: FDA-Public Use
  Company Number: BR-PFIZER INC-2017033276

PATIENT
  Sex: Female

DRUGS (5)
  1. DEPURA [Concomitant]
     Active Substance: CHOLECALCIFEROL
     Dosage: 5 GTT, 1X/DAY
  2. LIPITOR [Suspect]
     Active Substance: ATORVASTATIN CALCIUM
     Dosage: 40 MG, DAILY
     Route: 048
  3. LIPITOR [Suspect]
     Active Substance: ATORVASTATIN CALCIUM
     Indication: BLOOD CHOLESTEROL INCREASED
     Dosage: 20 MG, 2X/DAY
  4. TRAMADOL. [Concomitant]
     Active Substance: TRAMADOL
     Indication: PAIN
     Dosage: UNK, AS NEEDED (ONLY WHEN FEEL PAIN)
     Route: 048
  5. BENERVA [Concomitant]
     Active Substance: THIAMINE
     Indication: PAIN
     Dosage: UNK UNK, 2X/DAY
     Route: 048

REACTIONS (2)
  - Osteoarthritis [Unknown]
  - Spinal osteoarthritis [Unknown]
